FAERS Safety Report 18603399 (Version 3)
Quarter: 2021Q2

REPORT INFORMATION
  Report Type: Report from Study
  Country: US (occurrence: US)
  Receive Date: 20201210
  Receipt Date: 20210408
  Transmission Date: 20210717
  Serious: Yes (Other)
  Sender: FDA-Public Use
  Company Number: US-JNJFOC-20201207780

PATIENT
  Sex: Male

DRUGS (1)
  1. STELARA [Suspect]
     Active Substance: USTEKINUMAB
     Indication: CROHN^S DISEASE
     Route: 058

REACTIONS (8)
  - Stoma site haemorrhage [Recovered/Resolved]
  - Sneezing [Unknown]
  - Crohn^s disease [Unknown]
  - Anxiety [Recovering/Resolving]
  - Headache [Unknown]
  - Insomnia [Not Recovered/Not Resolved]
  - Injection site pain [Unknown]
  - Loss of personal independence in daily activities [Not Recovered/Not Resolved]
